FAERS Safety Report 23686561 (Version 1)
Quarter: 2024Q1

REPORT INFORMATION
  Report Type: Other
  Country: IN (occurrence: IN)
  Receive Date: 20240329
  Receipt Date: 20240329
  Transmission Date: 20240410
  Serious: Yes (Hospitalization)
  Sender: FDA-Public Use
  Company Number: IN-BoehringerIngelheim-2024-BI-016128

PATIENT
  Sex: Male
  Weight: 2.6 kg

DRUGS (2)
  1. METALYSE [Suspect]
     Active Substance: TENECTEPLASE
     Indication: Product used for unknown indication
     Route: 064
  2. ENOXAPARIN [Suspect]
     Active Substance: ENOXAPARIN
     Indication: Product used for unknown indication
     Route: 064

REACTIONS (2)
  - Acute respiratory distress syndrome [Recovered/Resolved]
  - Foetal exposure during pregnancy [Unknown]
